FAERS Safety Report 4315820-1 (Version None)
Quarter: 2004Q1

REPORT INFORMATION
  Report Type: 
  Country: None (occurrence: None)
  Receive Date: 20040310
  Receipt Date: 20040225
  Transmission Date: 20041129
  Serious: Yes (Death, Hospitalization)
  Sender: FDA-Public Use
  Company Number: 04P-144-0251648-00

PATIENT
  Age: 33 Year
  Sex: Male

DRUGS (7)
  1. KALETRA [Suspect]
     Indication: HIV INFECTION
     Dosage: 3 CAPSULES, 2 IN 1 D, PER ORAL
     Route: 048
     Dates: start: 20020830
  2. DIDANOSINE [Concomitant]
  3. LAMIVUDINE [Concomitant]
  4. SEPTRIM [Concomitant]
  5. LACTULOSE [Concomitant]
  6. TRAMADOL HCL [Concomitant]
  7. OMEPRAZOLE [Concomitant]

REACTIONS (5)
  - BRAIN ABSCESS [None]
  - CANDIDIASIS [None]
  - CONVULSION [None]
  - PNEUMONIA NECROTISING [None]
  - PSEUDOMONAS INFECTION [None]
